FAERS Safety Report 20751030 (Version 12)
Quarter: 2023Q2

REPORT INFORMATION
  Report Type: Report from Study
  Country: US (occurrence: US)
  Receive Date: 20220426
  Receipt Date: 20230614
  Transmission Date: 20230722
  Serious: Yes (Hospitalization, Other)
  Sender: FDA-Public Use
  Company Number: US-BIOVITRUM-2022US04995

PATIENT
  Age: 52 Year
  Sex: Female

DRUGS (6)
  1. KINERET [Suspect]
     Active Substance: ANAKINRA
     Indication: Rheumatoid arthritis
     Dosage: DAILY
     Route: 058
     Dates: start: 20190411
  2. KINERET [Suspect]
     Active Substance: ANAKINRA
     Dosage: DAILY
     Route: 058
     Dates: start: 20190416
  3. KINERET [Suspect]
     Active Substance: ANAKINRA
     Dosage: DAILY
     Route: 058
     Dates: start: 201904
  4. DEVICE [Suspect]
     Active Substance: DEVICE
     Indication: Rheumatoid arthritis
     Dosage: DAILY
     Route: 058
     Dates: start: 20190411
  5. DEVICE [Suspect]
     Active Substance: DEVICE
     Dosage: DAILY
     Route: 058
     Dates: start: 20190416
  6. DEVICE [Suspect]
     Active Substance: DEVICE
     Dosage: DAILY
     Route: 058
     Dates: start: 201904

REACTIONS (30)
  - Contusion [Recovered/Resolved]
  - Concussion [Recovered/Resolved]
  - Vomiting [Recovered/Resolved]
  - Swelling face [Recovered/Resolved]
  - Head injury [Recovered/Resolved]
  - Dizziness [Recovered/Resolved]
  - Amnesia [Recovered/Resolved]
  - Confusional state [Recovered/Resolved]
  - Product dose omission issue [Unknown]
  - Needle issue [Unknown]
  - Injury associated with device [Unknown]
  - Pain in extremity [Not Recovered/Not Resolved]
  - Constipation [Recovered/Resolved]
  - Injection site infection [Unknown]
  - Pain [Unknown]
  - Insomnia [Unknown]
  - Rheumatoid arthritis [Unknown]
  - Intervertebral disc degeneration [Unknown]
  - Sciatica [Unknown]
  - Hot flush [Unknown]
  - Neuralgia [Unknown]
  - Insurance issue [Unknown]
  - Emotional disorder [Unknown]
  - Movement disorder [Unknown]
  - Stenosis [Unknown]
  - Exostosis [Unknown]
  - Muscle tightness [Unknown]
  - Muscle twitching [Unknown]
  - Loss of personal independence in daily activities [Unknown]
  - Somnolence [Unknown]

NARRATIVE: CASE EVENT DATE: 20220401
